FAERS Safety Report 5020139-X (Version None)
Quarter: 2006Q2

REPORT INFORMATION
  Report Type: 
  Country: None (occurrence: None)
  Receive Date: 20060602
  Receipt Date: 20060530
  Transmission Date: 20061013
  Serious: Yes (Death)
  Sender: FDA-Public Use
  Company Number: J081-002-002245

PATIENT
  Age: 84 Year
  Sex: Male
  Weight: 48 kg

DRUGS (7)
  1. ARICEPT [Suspect]
     Indication: DEMENTIA ALZHEIMER'S TYPE
     Dosage: 3 MG, 1 IN 1 D, ORAL
     Route: 048
     Dates: start: 20060410, end: 20060417
  2. PLETAL [Concomitant]
  3. RIZE (CLOTIAZEPAM) [Concomitant]
  4. ISOSORBIDE MONONITRATE [Concomitant]
  5. VERAPAMIL HYDROCHLORIDE [Concomitant]
  6. MUCOSTA (REBAMIPIDE) [Concomitant]
  7. LANDEL10 (20 (EFONIDIPINE HYDROCHLORIDE) [Concomitant]

REACTIONS (4)
  - CEREBRAL HAEMATOMA [None]
  - CEREBRAL HAEMORRHAGE [None]
  - DEPRESSED LEVEL OF CONSCIOUSNESS [None]
  - YAWNING [None]
